FAERS Safety Report 7624503-1 (Version None)
Quarter: 2011Q3

REPORT INFORMATION
  Report Type: 
  Country: None (occurrence: None)
  Receive Date: 20110720
  Receipt Date: 20110707
  Transmission Date: 20111222
  Serious: Yes (Life-Threatening)
  Sender: FDA-Public Use
  Company Number: GB-MYLANLABS-2011S1014078

PATIENT
  Age: 51 Year
  Sex: Male
  Weight: 80 kg

DRUGS (2)
  1. MIRTAZAPINE [Suspect]
     Indication: DEPRESSION
     Route: 048
     Dates: start: 20040201
  2. VENTOLIN HFA [Concomitant]
     Indication: ASTHMA
     Route: 055

REACTIONS (2)
  - URTICARIA [None]
  - LOSS OF CONSCIOUSNESS [None]
